FAERS Safety Report 25269302 (Version 1)
Quarter: 2025Q2

REPORT INFORMATION
  Report Type: Spontaneous
  Country: US (occurrence: None)
  Receive Date: 20250505
  Receipt Date: 20250505
  Transmission Date: 20250716
  Serious: Yes (Life-Threatening, Hospitalization, Disabling)
  Sender: FDA-CTU
  Company Number: None

PATIENT

DRUGS (1)
  1. QELBREE [Suspect]
     Active Substance: VILOXAZINE HYDROCHLORIDE
     Indication: Attention deficit hyperactivity disorder

REACTIONS (7)
  - Insomnia [None]
  - Delusion [None]
  - Thinking abnormal [None]
  - Abnormal behaviour [None]
  - Hallucination [None]
  - Bipolar I disorder [None]
  - Psychotic disorder [None]

NARRATIVE: CASE EVENT DATE: 20241118
